FAERS Safety Report 16829789 (Version 1)
Quarter: 2019Q3

REPORT INFORMATION
  Report Type: Spontaneous
  Country: US (occurrence: US)
  Receive Date: 20190919
  Receipt Date: 20190919
  Transmission Date: 20191005
  Serious: No
  Sender: FDA-Public Use
  Company Number: US-009507513-1909USA003450

PATIENT

DRUGS (1)
  1. MOMETASONE FUROATE (WARRICK) [Suspect]
     Active Substance: MOMETASONE FUROATE
     Dosage: ONE TO TWO TUBES A MONTH
     Route: 061

REACTIONS (1)
  - Drug ineffective [Unknown]

NARRATIVE: CASE EVENT DATE: 2018
